FAERS Safety Report 8848783 (Version 1)
Quarter: 2012Q4

REPORT INFORMATION
  Report Type: Spontaneous
  Country: AT (occurrence: None)
  Receive Date: 20121016
  Receipt Date: 20121016
  Transmission Date: 20130627
  Serious: Yes (Hospitalization, Other)
  Sender: FDA-Public Use
  Company Number: FK201202977

PATIENT
  Age: 66 Year
  Sex: Male

DRUGS (10)
  1. LEVOTHYROXINE SODIUM [Suspect]
     Indication: HYPOTHYROIDISM
     Dates: start: 200606
  2. LEVOTHYROXINE SODIUM [Suspect]
     Indication: HYPOTHYROIDISM
     Dates: start: 200705
  3. BISOPROLOL(BISOPROLOL) [Concomitant]
  4. PYRIDOSTIGMINE(PYRIDOSTIGMINE) [Concomitant]
  5. PREDNISOLONE [Concomitant]
  6. BELLADONNA(BELLADONNA AND DERIVATIVES) [Concomitant]
  7. CEFUROXIME(CEFUROXIME) [Concomitant]
  8. CEFTAZIDIME(CEFTAZIDIME) [Concomitant]
  9. CLARITHROMYCIN(CLARITHROMYCIN) [Concomitant]
  10. FLUCONAZOLE(FLUCONAZOLE) [Concomitant]

REACTIONS (5)
  - Intervertebral discitis [None]
  - Endocarditis enterococcal [None]
  - Hypothyroidism [None]
  - Tricuspid valve incompetence [None]
  - Cardiac valve vegetation [None]
